FAERS Safety Report 12627646 (Version 3)
Quarter: 2016Q3

REPORT INFORMATION
  Report Type: Report from Study
  Country: KR (occurrence: KR)
  Receive Date: 20160805
  Receipt Date: 20160901
  Transmission Date: 20161109
  Serious: Yes (Other)
  Sender: FDA-Public Use
  Company Number: KR-TAKEDA-2016TUS013317

PATIENT
  Age: 37 Year
  Sex: Female

DRUGS (5)
  1. AZATHIOPRINE. [Concomitant]
     Active Substance: AZATHIOPRINE
     Indication: COLITIS ULCERATIVE
     Dosage: 25 MG, QD
     Route: 048
     Dates: start: 20150731, end: 20160726
  2. MESALAZINE [Concomitant]
     Active Substance: MESALAMINE
     Indication: COLITIS ULCERATIVE
     Dosage: 1200 MG, TID
     Route: 048
     Dates: start: 20140104
  3. DESOGESTREL + ETHINYL ESTRADIOL [Concomitant]
     Indication: CONTRACEPTION
     Dosage: UNK, QD
     Route: 048
     Dates: start: 20160304
  4. MUPIROCIN. [Concomitant]
     Active Substance: MUPIROCIN
     Indication: VARICELLA
     Dosage: 15 G, BID
     Route: 061
     Dates: start: 20160801
  5. ADALIMUMAB [Suspect]
     Active Substance: ADALIMUMAB
     Indication: COLITIS ULCERATIVE
     Dosage: 40 MG, UNK
     Route: 058
     Dates: start: 20160324

REACTIONS (1)
  - Varicella [Recovered/Resolved with Sequelae]

NARRATIVE: CASE EVENT DATE: 20160721
